FAERS Safety Report 11209278 (Version 3)
Quarter: 2015Q3

REPORT INFORMATION
  Report Type: Report from Study
  Country: AU (occurrence: AU)
  Receive Date: 20150622
  Receipt Date: 20150724
  Transmission Date: 20151125
  Serious: Yes (Hospitalization, Other)
  Sender: FDA-Public Use
  Company Number: PHHY2015AU074174

PATIENT
  Age: 42 Year
  Sex: Male
  Weight: 67 kg

DRUGS (6)
  1. GEMFIBROZIL. [Concomitant]
     Active Substance: GEMFIBROZIL
     Indication: BLOOD CHOLESTEROL INCREASED
     Dosage: 600 MG, QD
     Route: 048
  2. GEMFIBROZIL. [Concomitant]
     Active Substance: GEMFIBROZIL
     Indication: BLOOD TRIGLYCERIDES INCREASED
  3. ZUCLOPENTHIXOL DECANOATE [Concomitant]
     Active Substance: ZUCLOPENTHIXOL DECANOATE
     Indication: PSYCHOTIC DISORDER
     Dosage: 200 MG, BIW
     Route: 030
  4. CLOZARIL [Suspect]
     Active Substance: CLOZAPINE
     Indication: SCHIZOPHRENIA
     Dosage: UNK
     Route: 048
     Dates: start: 19930422, end: 20150402
  5. CLOZARIL [Suspect]
     Active Substance: CLOZAPINE
     Dosage: 900 MG, QD (200 MG MORNING, 200 MG MIDDAY AND 500 MG NIGHT)
     Route: 048
     Dates: start: 20130618
  6. CLOZARIL [Suspect]
     Active Substance: CLOZAPINE
     Dosage: (DOSE REDUCED)
     Route: 048
     Dates: end: 20150402

REACTIONS (8)
  - Vomiting [Unknown]
  - Constipation [Recovering/Resolving]
  - Blood urea nitrogen/creatinine ratio decreased [Recovered/Resolved]
  - Iron deficiency anaemia [Not Recovered/Not Resolved]
  - Temporal lobe epilepsy [Not Recovered/Not Resolved]
  - Blood folate decreased [Unknown]
  - Gastrooesophageal reflux disease [Unknown]
  - Acute coronary syndrome [Not Recovered/Not Resolved]

NARRATIVE: CASE EVENT DATE: 20070930
